FAERS Safety Report 6011508-X (Version None)
Quarter: 2008Q4

REPORT INFORMATION
  Report Type: 
  Country: None (occurrence: None)
  Receive Date: 20081218
  Receipt Date: 19970321
  Transmission Date: 20090506
  Serious: Yes (Death, Other)
  Sender: FDA-Public Use
  Company Number: AU-ROCHE-77529

PATIENT
  Age: 44 Year
  Sex: Male

DRUGS (1)
  1. CELLCEPT [Suspect]
     Indication: BONE MARROW TRANSPLANT
     Route: 065
     Dates: start: 19970225

REACTIONS (3)
  - DEATH [None]
  - GRAFT VERSUS HOST DISEASE [None]
  - HYPERBILIRUBINAEMIA [None]
